FAERS Safety Report 8725006 (Version 2)
Quarter: 2012Q4

REPORT INFORMATION
  Report Type: Report from Study
  Country: JP (occurrence: JP)
  Receive Date: 20120813
  Receipt Date: 20121017
  Transmission Date: 20130627
  Serious: Yes (Other)
  Sender: FDA-Public Use
  Company Number: JP-ROCHE-1097732

PATIENT
  Age: 68 Year
  Sex: Female

DRUGS (26)
  1. TOCILIZUMAB [Suspect]
     Indication: RHEUMATOID ARTHRITIS
     Route: 041
     Dates: start: 20080919, end: 20080919
  2. TOCILIZUMAB [Suspect]
     Indication: RHEUMATOID ARTHRITIS
     Route: 041
     Dates: start: 20081017, end: 20081017
  3. TOCILIZUMAB [Suspect]
     Indication: RHEUMATOID ARTHRITIS
     Route: 041
     Dates: start: 20081114, end: 20081114
  4. TOCILIZUMAB [Suspect]
     Indication: RHEUMATOID ARTHRITIS
     Route: 041
     Dates: start: 20081212, end: 20081212
  5. TOCILIZUMAB [Suspect]
     Indication: RHEUMATOID ARTHRITIS
     Route: 041
     Dates: start: 20090109, end: 20090109
  6. TOCILIZUMAB [Suspect]
     Indication: RHEUMATOID ARTHRITIS
     Route: 041
     Dates: start: 20090206, end: 20090206
  7. TOCILIZUMAB [Suspect]
     Indication: RHEUMATOID ARTHRITIS
     Route: 041
     Dates: start: 20090306, end: 20090306
  8. TOCILIZUMAB [Suspect]
     Indication: RHEUMATOID ARTHRITIS
     Route: 041
     Dates: start: 20090403, end: 20090403
  9. TOCILIZUMAB [Suspect]
     Indication: RHEUMATOID ARTHRITIS
     Route: 041
     Dates: start: 20090501, end: 20090501
  10. TOCILIZUMAB [Suspect]
     Indication: RHEUMATOID ARTHRITIS
     Route: 041
     Dates: start: 20090529, end: 20090529
  11. TOCILIZUMAB [Suspect]
     Indication: RHEUMATOID ARTHRITIS
     Route: 041
     Dates: start: 20090626, end: 20090626
  12. TOCILIZUMAB [Suspect]
     Indication: RHEUMATOID ARTHRITIS
     Route: 041
     Dates: start: 20090724, end: 20090724
  13. TOCILIZUMAB [Suspect]
     Indication: RHEUMATOID ARTHRITIS
     Route: 041
     Dates: start: 20090821, end: 20090821
  14. TOCILIZUMAB [Suspect]
     Indication: RHEUMATOID ARTHRITIS
     Route: 041
     Dates: start: 20090918, end: 20090918
  15. TOCILIZUMAB [Suspect]
     Indication: RHEUMATOID ARTHRITIS
     Route: 041
     Dates: start: 20091016, end: 20091016
  16. BONALON [Concomitant]
     Indication: OSTEOPOROSIS
     Route: 048
  17. PROMAC [Concomitant]
     Indication: PROPHYLAXIS
     Route: 048
     Dates: end: 20090108
  18. ANPLAG [Concomitant]
     Indication: THROMBOPHLEBITIS
     Route: 048
  19. VOLTAREN SR [Concomitant]
     Indication: RHEUMATOID ARTHRITIS
     Route: 048
  20. NORVASC [Concomitant]
     Indication: HYPERTENSION
     Route: 048
     Dates: start: 20090403
  21. PROSTANDIN [Concomitant]
  22. GENTACIN [Concomitant]
  23. PROCYLIN [Concomitant]
  24. FIBLAST [Concomitant]
  25. BAYASPIRIN [Concomitant]
  26. GEBEN CREAM [Concomitant]

REACTIONS (1)
  - Skin ulcer [Not Recovered/Not Resolved]
